FAERS Safety Report 4872792-9 (Version None)
Quarter: 2005Q4

REPORT INFORMATION
  Report Type: 
  Country: None (occurrence: None)
  Receive Date: 20051201
  Receipt Date: 20050707
  Transmission Date: 20060501
  Serious: No
  Sender: FDA-Public Use
  Company Number: 2005PV000320

PATIENT
  Age: 73 Year
  Sex: Male
  Weight: 110.6777 kg

DRUGS (15)
  1. BYETTA [Suspect]
     Indication: DIABETES MELLITUS NON-INSULIN-DEPENDENT
     Dosage: 5 UG; BID; SC
     Route: 058
     Dates: start: 20050701
  2. CELEBREX [Concomitant]
  3. TYLENOL W/ CODEINE NO. 3 [Concomitant]
  4. DILTIAZEM HCL [Concomitant]
  5. FATAMINE [Concomitant]
  6. HYTRIN [Concomitant]
  7. LIPITOR [Concomitant]
  8. GLYPARINE [Concomitant]
  9. ACTOS [Concomitant]
  10. BENAZEPRIL HCL [Concomitant]
  11. SAW PALMETTO [Concomitant]
  12. SELENIUM SULFIDE [Concomitant]
  13. GLYBURIDE [Concomitant]
  14. GLUCOTROL [Concomitant]
  15. GLYBURIDE [Concomitant]

REACTIONS (1)
  - BLOOD GLUCOSE FLUCTUATION [None]
